FAERS Safety Report 10055820 (Version 1)
Quarter: 2014Q2

REPORT INFORMATION
  Report Type: Spontaneous
  Country: AU (occurrence: AU)
  Receive Date: 20140403
  Receipt Date: 20140403
  Transmission Date: 20141212
  Serious: Yes (Other)
  Sender: FDA-Public Use
  Company Number: AU-MYLANLABS-2014S1006717

PATIENT
  Sex: Female

DRUGS (1)
  1. SUMATRIPTAN [Suspect]
     Indication: MIGRAINE
     Dates: start: 20140220

REACTIONS (14)
  - Toxicity to various agents [Not Recovered/Not Resolved]
  - Headache [Recovering/Resolving]
  - Neck pain [Not Recovered/Not Resolved]
  - Pain [Recovering/Resolving]
  - Tremor [Recovering/Resolving]
  - Eye pain [Recovering/Resolving]
  - Sinus headache [Recovering/Resolving]
  - Pain in extremity [Recovering/Resolving]
  - Renal impairment [Recovering/Resolving]
  - Hepatic function abnormal [Recovering/Resolving]
  - Gallbladder disorder [Recovering/Resolving]
  - Myalgia [Recovering/Resolving]
  - Gait disturbance [Not Recovered/Not Resolved]
  - Musculoskeletal stiffness [Not Recovered/Not Resolved]
